FAERS Safety Report 21426396 (Version 1)
Quarter: 2022Q4

REPORT INFORMATION
  Report Type: Spontaneous
  Country: US (occurrence: US)
  Receive Date: 20221008
  Receipt Date: 20221008
  Transmission Date: 20230113
  Serious: No
  Sender: FDA-Public Use
  Company Number: US-PURDUE PHARMA-USA-2020-0154123

PATIENT
  Sex: Female

DRUGS (3)
  1. BUTRANS [Suspect]
     Active Substance: BUPRENORPHINE
     Indication: Pain
     Dosage: 20 MCG/HR, WEEKLY
     Route: 062
  2. BUTRANS [Suspect]
     Active Substance: BUPRENORPHINE
     Indication: Neuronal neuropathy
  3. BUTRANS [Suspect]
     Active Substance: BUPRENORPHINE
     Indication: Trigeminal neuralgia

REACTIONS (7)
  - Application site erythema [Unknown]
  - Application site dryness [Unknown]
  - Application site pruritus [Not Recovered/Not Resolved]
  - Application site rash [Unknown]
  - Application site reaction [Not Recovered/Not Resolved]
  - Application site discharge [Not Recovered/Not Resolved]
  - Product administered at inappropriate site [Unknown]
